FAERS Safety Report 9126548 (Version 1)
Quarter: 2013Q1

REPORT INFORMATION
  Report Type: Spontaneous
  Country: US (occurrence: US)
  Receive Date: 20130228
  Receipt Date: 20130228
  Transmission Date: 20140127
  Serious: Yes (Hospitalization)
  Sender: FDA-Public Use
  Company Number: US-BIOGENIDEC-2013BI019626

PATIENT
  Age: 64 Year
  Sex: Female

DRUGS (8)
  1. AVONEX [Suspect]
     Indication: MULTIPLE SCLEROSIS
     Route: 030
  2. OXAPROZIN [Concomitant]
     Indication: ARTHRITIS
  3. HYDROCHLOROTHIAZIDE [Concomitant]
  4. LISINOPRIL [Concomitant]
  5. SIMVASTATIN [Concomitant]
  6. CLONAZEPAM [Concomitant]
  7. TIZANIDINE [Concomitant]
  8. PEG [Concomitant]
     Indication: CONSTIPATION

REACTIONS (2)
  - Hepatitis [Unknown]
  - Eosinophilia [Unknown]
